FAERS Safety Report 20946170 (Version 1)
Quarter: 2022Q2

REPORT INFORMATION
  Report Type: Spontaneous
  Country: US (occurrence: None)
  Receive Date: 20220609
  Receipt Date: 20220609
  Transmission Date: 20220721
  Serious: Yes (Other)
  Sender: FDA-Public Use
  Company Number: None

PATIENT
  Age: 68 Year
  Sex: Male

DRUGS (1)
  1. REVLIMID [Suspect]
     Active Substance: LENALIDOMIDE
     Indication: Plasma cell myeloma
     Dosage: FREQUENCY : DAILY;?
     Route: 048
     Dates: start: 20220428, end: 20220607

REACTIONS (6)
  - Feeding disorder [None]
  - Abdominal distension [None]
  - Weight decreased [None]
  - Dizziness [None]
  - Loss of consciousness [None]
  - Asthenia [None]

NARRATIVE: CASE EVENT DATE: 20220607
